FAERS Safety Report 15790156 (Version 3)
Quarter: 2019Q2

REPORT INFORMATION
  Report Type: Spontaneous
  Country: US (occurrence: US)
  Receive Date: 20190104
  Receipt Date: 20190612
  Transmission Date: 20190711
  Serious: No
  Sender: FDA-Public Use
  Company Number: US-SA-2019SA000306

PATIENT
  Age: 85 Year
  Sex: Female
  Weight: 66 kg

DRUGS (3)
  1. PRALUENT [Suspect]
     Active Substance: ALIROCUMAB
     Dosage: 150 MG, QOW
  2. PRALUENT [Suspect]
     Active Substance: ALIROCUMAB
     Dosage: UNK UNK, UNK
  3. PRALUENT [Suspect]
     Active Substance: ALIROCUMAB
     Indication: TYPE IIA HYPERLIPIDAEMIA
     Dosage: 75 MG, QOW
     Route: 058
     Dates: start: 20180629

REACTIONS (10)
  - Piloerection [Recovered/Resolved]
  - Limb discomfort [Unknown]
  - Influenza [Unknown]
  - Myalgia [Unknown]
  - Muscle spasms [Unknown]
  - Pain in extremity [Recovered/Resolved]
  - Asthenia [Unknown]
  - Speech disorder [Unknown]
  - Headache [Not Recovered/Not Resolved]
  - Drug ineffective [Unknown]
